FAERS Safety Report 7772708-1 (Version None)
Quarter: 2011Q3

REPORT INFORMATION
  Report Type: 
  Country: None (occurrence: None)
  Receive Date: 20110922
  Receipt Date: 20100809
  Transmission Date: 20111222
  Serious: No
  Sender: FDA-Public Use
  Company Number: US-ASTRAZENECA-2007UW21507

PATIENT
  Age: 471 Month
  Sex: Female
  Weight: 99.8 kg

DRUGS (31)
  1. SEROQUEL [Suspect]
     Indication: SLEEP DISORDER
     Dosage: 200-600 MG
     Route: 048
     Dates: start: 20040201, end: 20060323
  2. SEROQUEL [Suspect]
     Dosage: 25 MG-100 MG DAILY
     Route: 048
     Dates: start: 20040119
  3. TRAZODONE HYDROCHLORIDE [Concomitant]
     Route: 048
     Dates: start: 20040929
  4. ESKALITH [Concomitant]
     Route: 048
     Dates: start: 20040615
  5. CRESTOR [Concomitant]
     Route: 048
     Dates: start: 20060517
  6. PRAVACHOL [Concomitant]
     Route: 048
     Dates: start: 20060517
  7. DEPAKOTE [Concomitant]
     Indication: ANGER
     Route: 048
     Dates: start: 20040518
  8. SEROQUEL [Suspect]
     Indication: DEPRESSION
     Dosage: 200-600 MG
     Route: 048
     Dates: start: 20040201, end: 20060323
  9. SEROQUEL [Suspect]
     Dosage: 25 MG-100 MG DAILY
     Route: 048
     Dates: start: 20040119
  10. EFFEXOR XR [Concomitant]
     Dosage: 75 MG-225 MG DAILY
     Route: 048
     Dates: start: 20030827
  11. ALLEGRA [Concomitant]
     Route: 048
     Dates: start: 20070924
  12. MIDRIN [Concomitant]
     Indication: MIGRAINE
     Dosage: 1-2 TABLET EVERY 4-6 HOURS
     Route: 048
     Dates: start: 20060810
  13. SEROQUEL [Suspect]
     Dosage: 25 MG-100 MG DAILY
     Route: 048
     Dates: start: 20040119
  14. SEROQUEL [Suspect]
     Dosage: 25 MG-100 MG DAILY
     Route: 048
     Dates: start: 20040119
  15. WELLBUTRIN XL [Concomitant]
     Route: 048
     Dates: start: 20040224
  16. COZAAR [Concomitant]
     Route: 048
     Dates: start: 20040415
  17. MOBIC [Concomitant]
     Indication: ARTHRITIS
     Route: 048
     Dates: start: 20060810
  18. SEROQUEL [Suspect]
     Indication: ANXIETY
     Dosage: 200-600 MG
     Route: 048
     Dates: start: 20040201, end: 20060323
  19. TRICOR [Concomitant]
     Dosage: 145 MG-160 MG DAILY
     Route: 048
     Dates: start: 20031119
  20. LAMICTAL [Concomitant]
     Route: 048
     Dates: start: 20040628
  21. GEODON [Concomitant]
     Route: 048
     Dates: start: 20060517
  22. GEODON [Concomitant]
     Dates: start: 20060101
  23. DOXEPIN [Concomitant]
     Dates: start: 20060517
  24. LEXAPRO [Concomitant]
     Route: 048
     Dates: start: 20040130
  25. PROZAC [Concomitant]
     Route: 048
     Dates: start: 20070821
  26. NEURONTIN [Concomitant]
     Dates: start: 20060517
  27. LISINOPRIL [Concomitant]
     Indication: HYPERTENSION
     Route: 048
     Dates: start: 20061222
  28. SEROQUEL [Suspect]
     Indication: BIPOLAR DISORDER
     Dosage: 200-600 MG
     Route: 048
     Dates: start: 20040201, end: 20060323
  29. DIOVAN [Concomitant]
     Route: 048
     Dates: start: 20031118
  30. CLORAZ DIPOT [Concomitant]
     Route: 048
     Dates: start: 20040105
  31. MOBIC [Concomitant]
     Indication: BACK PAIN
     Route: 048
     Dates: start: 20060810

REACTIONS (8)
  - ROAD TRAFFIC ACCIDENT [None]
  - TYPE 2 DIABETES MELLITUS [None]
  - DIABETES MELLITUS [None]
  - NECK PAIN [None]
  - HYPERGLYCAEMIA [None]
  - DRUG INEFFECTIVE [None]
  - SINUSITIS [None]
  - DIABETIC COMPLICATION [None]
